FAERS Safety Report 13513370 (Version 1)
Quarter: 2017Q2

REPORT INFORMATION
  Report Type: Spontaneous
  Country: US (occurrence: US)
  Receive Date: 20170504
  Receipt Date: 20170504
  Transmission Date: 20170830
  Serious: Yes (Hospitalization)
  Sender: FDA-Public Use
  Company Number: None

PATIENT
  Age: 93 Year
  Sex: Female
  Weight: 77.1 kg

DRUGS (11)
  1. WARFARIN [Suspect]
     Active Substance: WARFARIN
     Indication: DEEP VEIN THROMBOSIS
     Dosage: DATES OF USE CHRONIC??TUES/SAT
     Route: 048
  2. WARFARIN [Suspect]
     Active Substance: WARFARIN
     Indication: DEEP VEIN THROMBOSIS
     Dosage: DATES OF USE CHRONIC??MWTHF+SUN
     Route: 048
  3. TRAMADOL. [Concomitant]
     Active Substance: TRAMADOL
  4. MEVACOR [Concomitant]
     Active Substance: LOVASTATIN
  5. PRED FORTE [Concomitant]
     Active Substance: PREDNISOLONE ACETATE
  6. KEFLEX [Concomitant]
     Active Substance: CEPHALEXIN
  7. INDERAL [Concomitant]
     Active Substance: PROPRANOLOL HYDROCHLORIDE
  8. BETIMOL [Concomitant]
     Active Substance: TIMOLOL
  9. SYNTHROID [Concomitant]
     Active Substance: LEVOTHYROXINE SODIUM
  10. CELEBREX [Concomitant]
     Active Substance: CELECOXIB
  11. LOTEMAX [Concomitant]
     Active Substance: LOTEPREDNOL ETABONATE

REACTIONS (5)
  - Rectal haemorrhage [None]
  - Extra dose administered [None]
  - Coagulopathy [None]
  - Diverticulum [None]
  - Polyp [None]

NARRATIVE: CASE EVENT DATE: 20161123
